FAERS Safety Report 9251372 (Version 2)
Quarter: 2014Q1

REPORT INFORMATION
  Report Type: Spontaneous
  Country: US (occurrence: None)
  Receive Date: 20130305
  Receipt Date: 20140306
  Transmission Date: 20141002
  Serious: Yes (Life-Threatening, Hospitalization)
  Sender: FDA-Public Use
  Company Number: 163-21880-12082036

PATIENT
  Age: 68 Year
  Sex: Female
  Weight: 65.6 kg

DRUGS (10)
  1. REVLIMID (LENALIDOMIDE) (CAPSULES) [Suspect]
     Indication: PLASMA CELL MYELOMA
     Dosage: 18.75 MG, 21 IN 28 D, PO
     Route: 048
     Dates: start: 20110111
  2. ASA (ACETYLSALICYLIC ACID) [Concomitant]
  3. CALCIUM + VITAMIN D (LEKOVIT CA) [Concomitant]
  4. LEXAPRO (ESCITALOPRAM OXALATE) (TABLETS) [Concomitant]
  5. DEXAMETHASONE (DEXAMETHASONE) [Concomitant]
  6. CLARITIN (LORATADINE) [Concomitant]
  7. NASONEX (MOMETASONE FUROATE) [Concomitant]
  8. PROTONIX [Concomitant]
  9. K-DUR (POTASSIUM CHLORIDE) [Concomitant]
  10. LOVENOX (HEPARIN-FRACTION, SODIUM SALT) [Concomitant]

REACTIONS (1)
  - Deep vein thrombosis [None]
